FAERS Safety Report 5326694-4 (Version None)
Quarter: 2007Q2

REPORT INFORMATION
  Report Type: 
  Country: None (occurrence: None)
  Receive Date: 20070516
  Receipt Date: 20070504
  Transmission Date: 20071010
  Serious: Yes (Disabling, Other)
  Sender: FDA-Public Use
  Company Number: US-PFIZER INC-2006125899

PATIENT
  Sex: Male
  Weight: 113.4 kg

DRUGS (17)
  1. VIAGRA [Suspect]
     Indication: ERECTILE DYSFUNCTION
     Dates: start: 20030101, end: 20050401
  2. PREDNISONE TAB [Concomitant]
     Dates: start: 19940101
  3. CELLCEPT [Concomitant]
     Dates: start: 20020101
  4. PROGRAF [Concomitant]
     Dates: start: 20020101
  5. ACYCLOVIR [Concomitant]
     Dates: start: 20020101
  6. ZANTAC [Concomitant]
     Dates: start: 20020101
  7. CLONIDINE [Concomitant]
     Dates: start: 20020101
  8. LASIX [Concomitant]
     Dates: start: 19940101
  9. MONTELUKAST SODIUM [Concomitant]
     Dates: start: 19940101
  10. ALLOPURINOL [Concomitant]
     Dates: start: 19980101
  11. BACTRIM [Concomitant]
     Dates: start: 20020101
  12. SPIRIVA [Concomitant]
     Dates: start: 20020101
  13. ADVAIR DISKUS 100/50 [Concomitant]
  14. NOVOLOG [Concomitant]
     Dates: start: 20000101
  15. FOSAMAX [Concomitant]
     Dates: start: 20020101
  16. MAALOX FAST BLOCKER [Concomitant]
     Dates: start: 19850101
  17. ASPIRIN [Concomitant]
     Dates: start: 19890101

REACTIONS (2)
  - BLINDNESS [None]
  - OPTIC ISCHAEMIC NEUROPATHY [None]
